FAERS Safety Report 9298053 (Version 1)
Quarter: 2013Q2

REPORT INFORMATION
  Report Type: Spontaneous
  Country: US (occurrence: US)
  Receive Date: 20130520
  Receipt Date: 20130520
  Transmission Date: 20140414
  Serious: Yes (Other)
  Sender: FDA-Public Use
  Company Number: US-ELI_LILLY_AND_COMPANY-US201305002845

PATIENT
  Sex: Female

DRUGS (8)
  1. HUMATROPE [Suspect]
     Dosage: UNK, UNKNOWN
     Route: 065
  2. LIPITOR [Concomitant]
     Dosage: 10 MG, UNKNOWN
     Route: 065
  3. VITAMIN D [Concomitant]
     Dosage: 35000 U, WEEKLY (1/W)
     Route: 065
  4. LASIX [Concomitant]
     Dosage: 20 MG, UNKNOWN
     Route: 065
  5. CORTEF [Concomitant]
     Dosage: UNK, UNKNOWN
     Route: 065
  6. METFORMIN [Concomitant]
     Dosage: UNK, UNKNOWN
     Route: 065
  7. ZANTAC [Concomitant]
     Dosage: UNK, UNKNOWN
     Route: 065
  8. ZOLOFT [Concomitant]
     Dosage: 50 MG, UNKNOWN
     Route: 065

REACTIONS (1)
  - Brain neoplasm [Unknown]
